FAERS Safety Report 10967604 (Version 2)
Quarter: 2015Q2

REPORT INFORMATION
  Report Type: Spontaneous
  Country: ES (occurrence: ES)
  Receive Date: 20150330
  Receipt Date: 20150406
  Transmission Date: 20150821
  Serious: Yes (Other)
  Sender: FDA-Public Use
  Company Number: ES-MYLANLABS-2015M1008754

PATIENT

DRUGS (2)
  1. FLUCONAZOL MYLAN 150 MG CAPSULAS EFG [Suspect]
     Active Substance: FLUCONAZOLE
     Indication: PRODUCT USED FOR UNKNOWN INDICATION
     Dosage: 150 MG, QD
     Route: 048
     Dates: start: 20150218, end: 20150220
  2. DALACIN OVULOS [Suspect]
     Active Substance: CLINDAMYCIN PHOSPHATE
     Indication: PRODUCT USED FOR UNKNOWN INDICATION
     Dosage: UNK
     Route: 067
     Dates: start: 20150108, end: 20150110

REACTIONS (6)
  - Adnexa uteri pain [Not Recovered/Not Resolved]
  - Pain in extremity [Recovered/Resolved]
  - Breast pain [Not Recovered/Not Resolved]
  - Inflammation [Not Recovered/Not Resolved]
  - Menstrual disorder [Recovered/Resolved with Sequelae]
  - Vaginal discharge [Not Recovered/Not Resolved]

NARRATIVE: CASE EVENT DATE: 20150220
